FAERS Safety Report 19007175 (Version 1)
Quarter: 2021Q1

REPORT INFORMATION
  Report Type: Spontaneous
  Country: US (occurrence: US)
  Receive Date: 20210315
  Receipt Date: 20210315
  Transmission Date: 20210420
  Serious: Yes (Other)
  Sender: FDA-Public Use
  Company Number: None

PATIENT
  Age: 34 Year
  Sex: Male
  Weight: 136.4 kg

DRUGS (1)
  1. BAMLANIVIMAB. [Suspect]
     Active Substance: BAMLANIVIMAB
     Indication: COVID-19
     Dosage: ?          OTHER FREQUENCY:ONCE;?
     Route: 042
     Dates: start: 20210312, end: 20210312

REACTIONS (8)
  - Somnolence [None]
  - Pulse abnormal [None]
  - Cold sweat [None]
  - Circulatory collapse [None]
  - Infusion related reaction [None]
  - Eye movement disorder [None]
  - Tremor [None]
  - Respiration abnormal [None]

NARRATIVE: CASE EVENT DATE: 20210312
